FAERS Safety Report 6213846-4 (Version None)
Quarter: 2009Q2

REPORT INFORMATION
  Report Type: 
  Country: None (occurrence: None)
  Receive Date: 20090601
  Receipt Date: 20090601
  Transmission Date: 20091009
  Serious: Yes (Life-Threatening, Hospitalization)
  Sender: FDA-Public Use
  Company Number: None

PATIENT
  Age: 60 Year
  Sex: Male
  Weight: 85 kg

DRUGS (2)
  1. CYANOKIT [Suspect]
     Indication: BLOOD CYANIDE INCREASED
     Dosage: 5 GRAMS ONCE IV BOLUS
     Route: 040
     Dates: start: 20090523, end: 20090523
  2. CYANOKIT [Suspect]
     Indication: POISONING
     Dosage: 5 GRAMS ONCE IV BOLUS
     Route: 040
     Dates: start: 20090523, end: 20090523

REACTIONS (1)
  - HYPERTENSION [None]
